FAERS Safety Report 25753273 (Version 1)
Quarter: 2025Q3

REPORT INFORMATION
  Report Type: Spontaneous
  Country: US (occurrence: US)
  Receive Date: 20250903
  Receipt Date: 20250903
  Transmission Date: 20251021
  Serious: No
  Sender: ELI LILLY AND COMPANY
  Company Number: US-ELI_LILLY_AND_COMPANY-US202508026921

PATIENT
  Age: 29 Year
  Sex: Female

DRUGS (1)
  1. VERZENIO [Suspect]
     Active Substance: ABEMACICLIB
     Indication: Breast cancer
     Dosage: 150 MG, BID
     Route: 048
     Dates: start: 20250725

REACTIONS (7)
  - Thirst [Recovered/Resolved]
  - Dehydration [Recovered/Resolved]
  - Red blood cell count decreased [Unknown]
  - Diarrhoea [Recovering/Resolving]
  - White blood cell count decreased [Unknown]
  - Haematocrit decreased [Unknown]
  - Platelet count decreased [Unknown]

NARRATIVE: CASE EVENT DATE: 20250801
